FAERS Safety Report 8845346 (Version 1)
Quarter: 2012Q4

REPORT INFORMATION
  Report Type: Spontaneous
  Country: ES (occurrence: None)
  Receive Date: 20121015
  Receipt Date: 20121015
  Transmission Date: 20130627
  Serious: Yes (Hospitalization)
  Sender: FDA-Public Use
  Company Number: ES-INDICUS PHARMA-000032

PATIENT
  Age: 75 Year
  Sex: Male

DRUGS (1)
  1. METFORMIN HYDROCHLORIDE [Suspect]
     Indication: TYPE 2 DIABETES MELLITUS

REACTIONS (5)
  - Metabolic acidosis [None]
  - Renal failure [None]
  - Respiratory failure [None]
  - Continuous haemodiafiltration [None]
  - Haemodynamic instability [None]
